FAERS Safety Report 20859310 (Version 2)
Quarter: 2023Q1

REPORT INFORMATION
  Report Type: Report from Study
  Country: GB (occurrence: GB)
  Receive Date: 20220523
  Receipt Date: 20230208
  Transmission Date: 20230418
  Serious: Yes (Hospitalization)
  Sender: FDA-Public Use
  Company Number: GB-NOVARTISPH-NVSC2022GB113249

PATIENT
  Sex: Female

DRUGS (14)
  1. HYRIMOZ [Suspect]
     Active Substance: ADALIMUMAB-ADAZ
     Indication: Crohn^s disease
     Dosage: 40 MG, Q2W
     Route: 058
  2. HYRIMOZ [Suspect]
     Active Substance: ADALIMUMAB-ADAZ
     Dosage: UNK (SELF ADMINISTERED EVERY 2 WEEKS SINCE 2013) (2 PREFILLED DISPOSBLE INJECTION)
     Route: 065
     Dates: end: 20210727
  3. FAMOTIDINE [Concomitant]
     Active Substance: FAMOTIDINE
     Indication: Product used for unknown indication
     Dosage: UNK (ONE OR TWO TO BE TAKEN TWICE A DAY) (84 TABLET)
     Route: 065
  4. HUMIRA [Concomitant]
     Active Substance: ADALIMUMAB
     Indication: Product used for unknown indication
     Dosage: UNK
     Route: 065
     Dates: start: 201307
  5. GLICLAZIDE [Concomitant]
     Active Substance: GLICLAZIDE
     Indication: Product used for unknown indication
     Dosage: UNK (2 TO BE TAKEN WITH BREAKFAST AND 2 TO BE TAKEN WITH TEA)(224 TABLET)
     Route: 065
  6. LOSARTAN [Concomitant]
     Active Substance: LOSARTAN
     Indication: Product used for unknown indication
     Dosage: UNK (1 TO BE TAKEN EACH DAY) (56 TABLET)
     Route: 065
  7. MIRTAZAPINE [Concomitant]
     Active Substance: MIRTAZAPINE
     Indication: Product used for unknown indication
     Dosage: UNK (1 TO BE TAKEN DAILY INSTEAD OF ORODISPERSIBLE TABLET)(28 TABELT)
     Route: 065
  8. ACETAMINOPHEN [Concomitant]
     Active Substance: ACETAMINOPHEN
     Indication: Analgesic therapy
     Dosage: UNK (2 TABLET UP TO 4 TIMES A DAY)(200 TABLET)
     Route: 065
  9. CANAGLIFLOZIN [Concomitant]
     Active Substance: CANAGLIFLOZIN
     Indication: Product used for unknown indication
     Dosage: UNK (1 TO BE TAKEN DAILY PREFERABLY BEFORE BREAKFAST)
     Route: 065
  10. ALBUTEROL SULFATE [Concomitant]
     Active Substance: ALBUTEROL SULFATE
     Indication: Product used for unknown indication
     Dosage: UNK (1X 200 DOSE) (1 OR 2 PUFFS TO BE INHALED 4 TIMES A DAY WHEN REQUIRED) (100 MICROGRAM PER DOSE D
     Route: 065
  11. CALCEOS [Concomitant]
     Active Substance: CALCIUM CARBONATE\CHOLECALCIFEROL
     Indication: Product used for unknown indication
     Dosage: 1 DOSAGE FORM, TID (168 TABLET) (500MG/ 400 UNIT)
     Route: 065
  12. ATORVASTATIN [Concomitant]
     Active Substance: ATORVASTATIN
     Indication: Product used for unknown indication
     Dosage: 1 DOSAGE FORM, QD (56 TABLET)
     Route: 065
  13. BD [Concomitant]
     Indication: Product used for unknown indication
     Dosage: UNK (USE AS DIRECTED, USE A NEEDLE  EACH TIME YOU INJECT EACH TIME) (180 NEEDLE) (VIVA HYPODERMIC IN
     Route: 065
  14. TRESIBA [Concomitant]
     Active Substance: INSULIN DEGLUDEC
     Indication: Product used for unknown indication
     Dosage: UNK (AS DIRECTED, 5 PREFILLED DISPOSABLE SYRINGE) (FLEX TOUCH 100 UNITS/ ML, 3 ML PREFILLED PEN)
     Route: 065

REACTIONS (4)
  - Hypomagnesaemia [Recovered/Resolved]
  - Hypocalcaemia [Recovered/Resolved]
  - Inappropriate schedule of product administration [Unknown]
  - Product prescribing issue [Unknown]

NARRATIVE: CASE EVENT DATE: 20130206
